FAERS Safety Report 6609919-4 (Version None)
Quarter: 2010Q1

REPORT INFORMATION
  Report Type: 
  Country: None (occurrence: None)
  Receive Date: 20100216
  Receipt Date: 20090223
  Transmission Date: 20100710
  Serious: Yes (Hospitalization)
  Sender: FDA-Public Use
  Company Number: MC200900025

PATIENT
  Age: 51 Year
  Sex: Female
  Weight: 88.3 kg

DRUGS (12)
  1. ANGIOMAX [Suspect]
     Indication: PERCUTANEOUS CORONARY INTERVENTION
     Dosage: 12.75 ML, BOLUS, , 29.9 ML, HR, 5 MG/ML, INTRAVENOUS, 29.9 ML, HR, INTRAVENOUS
     Route: 040
     Dates: start: 20090107, end: 20090107
  2. ANGIOMAX [Suspect]
     Indication: PERCUTANEOUS CORONARY INTERVENTION
     Dosage: 12.75 ML, BOLUS, , 29.9 ML, HR, 5 MG/ML, INTRAVENOUS, 29.9 ML, HR, INTRAVENOUS
     Route: 040
     Dates: start: 20090107, end: 20090107
  3. ANGIOMAX [Suspect]
     Indication: PERCUTANEOUS CORONARY INTERVENTION
     Dosage: 12.75 ML, BOLUS, , 29.9 ML, HR, 5 MG/ML, INTRAVENOUS, 29.9 ML, HR, INTRAVENOUS
     Route: 040
     Dates: start: 20090107, end: 20090107
  4. ASPIRIN [Concomitant]
  5. PLAVIX [Concomitant]
  6. DILAUIDID (HYDROMORPHONE HYDROCHLORIDE) [Concomitant]
  7. INTEGRILIN [Concomitant]
  8. VERSED [Concomitant]
  9. ZOFRAN [Concomitant]
  10. VISIPAQUE [Concomitant]
  11. SODIUM CHLORIDE [Concomitant]
  12. LIDOCAINE [Concomitant]

REACTIONS (3)
  - CHEST PAIN [None]
  - DYSPNOEA [None]
  - THROMBOSIS IN DEVICE [None]
